FAERS Safety Report 14032947 (Version 1)
Quarter: 2017Q4

REPORT INFORMATION
  Report Type: Spontaneous
  Country: JP (occurrence: JP)
  Receive Date: 20171002
  Receipt Date: 20171002
  Transmission Date: 20180321
  Serious: Yes (Death, Hospitalization, Other)
  Sender: FDA-Public Use
  Company Number: JP-MYLANLABS-2017M1061163

PATIENT
  Age: 40 Year
  Sex: Male

DRUGS (9)
  1. VANCOMYCIN [Suspect]
     Active Substance: VANCOMYCIN
     Indication: STAPHYLOCOCCAL INFECTION
     Route: 042
  2. ARBEKACIN [Suspect]
     Active Substance: ARBEKACIN
     Indication: STAPHYLOCOCCAL INFECTION
     Route: 042
  3. TEICOPLANIN [Concomitant]
     Active Substance: TEICOPLANIN
     Indication: STAPHYLOCOCCAL INFECTION
     Route: 065
  4. LINEZOLID. [Suspect]
     Active Substance: LINEZOLID
     Indication: STAPHYLOCOCCAL INFECTION
     Route: 065
  5. ARBEKACIN [Suspect]
     Active Substance: ARBEKACIN
     Route: 030
  6. DAPTOMYCIN. [Suspect]
     Active Substance: DAPTOMYCIN
     Indication: STAPHYLOCOCCAL INFECTION
     Route: 065
  7. VANCOMYCIN [Suspect]
     Active Substance: VANCOMYCIN
     Dosage: DOSE ADJUSTED DUE TO RENAL IMPAIRMENT; THROUGH LEVEL OF 15-20 MICROG/ML MAINTAINED
     Route: 042
  8. RIFAMPICIN [Concomitant]
     Active Substance: RIFAMPIN
     Indication: STAPHYLOCOCCAL INFECTION
     Route: 065
  9. ERYTHROMYCIN. [Concomitant]
     Active Substance: ERYTHROMYCIN
     Indication: STAPHYLOCOCCAL INFECTION
     Route: 065

REACTIONS (3)
  - Thrombocytopenia [Unknown]
  - Renal impairment [Unknown]
  - Pathogen resistance [Unknown]
